FAERS Safety Report 5918714-0 (Version None)
Quarter: 2008Q4

REPORT INFORMATION
  Report Type: 
  Country: None (occurrence: None)
  Receive Date: 20081015
  Receipt Date: 20080620
  Transmission Date: 20090506
  Serious: Yes (Other)
  Sender: FDA-Public Use
  Company Number: US-ASTRAZENECA-2008UW12521

PATIENT
  Age: 28 Year
  Sex: Female

DRUGS (1)
  1. SYMBICORT [Suspect]
     Dosage: 2 INHALATIONS BID
     Route: 055

REACTIONS (1)
  - HYPERSENSITIVITY [None]
